FAERS Safety Report 9278318 (Version 3)
Quarter: 2013Q2

REPORT INFORMATION
  Report Type: Spontaneous
  Country: US (occurrence: US)
  Receive Date: 20130508
  Receipt Date: 20130627
  Transmission Date: 20140414
  Serious: Yes (Hospitalization)
  Sender: FDA-Public Use
  Company Number: US-B.I. PHARMACEUTICALS,INC./RIDGEFIELD-2013-BI-12522BP

PATIENT
  Age: 56 Year
  Sex: Female
  Weight: 110 kg

DRUGS (6)
  1. PRADAXA [Suspect]
     Indication: CEREBROVASCULAR ACCIDENT PROPHYLAXIS
     Dosage: 300 MG
     Route: 048
     Dates: start: 201206
  2. PRADAXA [Suspect]
     Indication: ATRIAL FIBRILLATION
     Dosage: 300 MG
     Route: 048
     Dates: start: 20120607, end: 20120614
  3. SYNTHYROID [Concomitant]
     Indication: AUTOIMMUNE THYROIDITIS
     Dosage: 75 MCG
     Route: 048
     Dates: start: 201206
  4. LISINOPRIL [Concomitant]
     Indication: HYPERTENSION
     Dosage: 10 MG
     Route: 048
     Dates: start: 201206
  5. CARVEDILOL [Concomitant]
     Indication: HYPERTENSION
     Dosage: 50 MG
     Route: 048
     Dates: start: 201206
  6. LEVOTHYROXINE [Concomitant]
     Indication: AUTOIMMUNE THYROIDITIS
     Route: 048

REACTIONS (4)
  - Anal haemorrhage [Recovered/Resolved]
  - Cough [Not Recovered/Not Resolved]
  - Epistaxis [Recovered/Resolved]
  - Vessel puncture site haemorrhage [Recovered/Resolved]
